FAERS Safety Report 7860053-5 (Version None)
Quarter: 2011Q4

REPORT INFORMATION
  Report Type: 
  Country: None (occurrence: None)
  Receive Date: 20111025
  Receipt Date: 20111011
  Transmission Date: 20120403
  Serious: Yes (Other)
  Sender: FDA-Public Use
  Company Number: CA-006553

PATIENT
  Sex: Female

DRUGS (4)
  1. CLIMARA [Concomitant]
  2. ASAPHEN [Concomitant]
  3. ENDOMETRIN [Suspect]
     Indication: LUTEAL PHASE DEFICIENCY
     Dosage: (VAGINAL)
     Route: 067
     Dates: start: 20110918, end: 20110921
  4. FOLIC ACID [Concomitant]

REACTIONS (4)
  - MATERNAL EXPOSURE DURING PREGNANCY [None]
  - VULVOVAGINAL BURNING SENSATION [None]
  - VAGINAL INFLAMMATION [None]
  - ABDOMINAL PAIN [None]
